FAERS Safety Report 5023473-2 (Version None)
Quarter: 2006Q2

REPORT INFORMATION
  Report Type: 
  Country: None (occurrence: None)
  Receive Date: 20060606
  Receipt Date: 20060526
  Transmission Date: 20061013
  Serious: Yes (Other)
  Sender: FDA-Public Use
  Company Number: HQWYE549614NOV05

PATIENT
  Age: 24 Year
  Sex: Male

DRUGS (7)
  1. RAPAMUNE [Suspect]
     Indication: PROPHYLAXIS AGAINST TRANSPLANT REJECTION
     Dosage: SEE IMAGE
     Route: 048
     Dates: start: 20040604, end: 20040604
  2. RAPAMUNE [Suspect]
     Indication: PROPHYLAXIS AGAINST TRANSPLANT REJECTION
     Dosage: SEE IMAGE
     Route: 048
     Dates: start: 20040605
  3. RAPAMUNE [Suspect]
  4. PREDNISONE TAB [Concomitant]
  5. ................ [Concomitant]
  6. CYCLOSPORINE [Concomitant]
  7. ...................... [Concomitant]

REACTIONS (1)
  - KIDNEY TRANSPLANT REJECTION [None]
